FAERS Safety Report 9143762 (Version 3)
Quarter: 2013Q2

REPORT INFORMATION
  Report Type: Report from Study
  Country: TH (occurrence: TH)
  Receive Date: 20130306
  Receipt Date: 20130402
  Transmission Date: 20140414
  Serious: Yes (Death, Life-Threatening)
  Sender: FDA-Public Use
  Company Number: TH-ROCHE-1163940

PATIENT
  Age: 67 Year
  Sex: Female
  Weight: 68.4 kg

DRUGS (22)
  1. TOCILIZUMAB [Suspect]
     Indication: RHEUMATOID ARTHRITIS
     Dosage: DATE OF MOST RECENT DOSE : 29/NOV/2012, LAST DOSE TAKEN: 162 MG
     Route: 058
     Dates: start: 20110721
  2. BLINDED TOCILIZUMAB [Suspect]
     Indication: RHEUMATOID ARTHRITIS
     Dosage: DATE OF MOST RECENT DOSE : 07/JUL/2011
     Route: 058
     Dates: start: 20110428, end: 20110707
  3. SALAZOPYRIN EN [Concomitant]
     Indication: RHEUMATOID ARTHRITIS
     Route: 048
     Dates: start: 20110105, end: 20130103
  4. HYDROXYCHLOROQUINE [Concomitant]
     Indication: RHEUMATOID ARTHRITIS
     Route: 048
     Dates: start: 20110302, end: 20130103
  5. METHOTREXATE [Concomitant]
     Indication: RHEUMATOID ARTHRITIS
     Route: 048
     Dates: start: 20110302, end: 20121206
  6. PREDNISOLONE [Concomitant]
     Indication: RHEUMATOID ARTHRITIS
     Route: 048
     Dates: start: 20110302
  7. TRAMADOL [Concomitant]
     Route: 048
     Dates: start: 20110330
  8. OMEPRAZOLE [Concomitant]
     Route: 048
     Dates: start: 20110302
  9. ATENOLOL [Concomitant]
     Route: 048
     Dates: start: 200506
  10. NIFEDIPINE RETARD [Concomitant]
     Route: 048
     Dates: start: 200506
  11. METFORMIN [Concomitant]
     Route: 048
     Dates: start: 200806
  12. GLIBENCLAMIDE [Concomitant]
     Route: 048
     Dates: start: 200806
  13. SIMVASTATIN [Concomitant]
     Route: 048
     Dates: start: 200506
  14. PARACETAMOL [Concomitant]
     Route: 048
     Dates: start: 20110623
  15. FOLIC ACID [Concomitant]
     Route: 048
     Dates: start: 20120329
  16. NAPROXEN [Concomitant]
     Indication: RHEUMATOID ARTHRITIS
     Route: 048
     Dates: start: 20120621
  17. NEURONTIN [Concomitant]
     Route: 048
     Dates: start: 20120621
  18. ENALAPRIL [Concomitant]
     Route: 048
     Dates: start: 20120620
  19. PIOGLITAZONE [Concomitant]
     Route: 048
     Dates: start: 20120620
  20. DOMPERIDONE [Concomitant]
     Route: 048
     Dates: start: 20111208
  21. DOMPERIDONE [Concomitant]
     Route: 048
     Dates: start: 20120816
  22. PERIACTIN [Concomitant]
     Route: 048
     Dates: start: 20111208

REACTIONS (2)
  - Upper gastrointestinal haemorrhage [Fatal]
  - Pancreatic carcinoma [Not Recovered/Not Resolved]
